FAERS Safety Report 6870721-X (Version None)
Quarter: 2010Q3

REPORT INFORMATION
  Report Type: 
  Country: None (occurrence: None)
  Receive Date: 20100723
  Receipt Date: 20100720
  Transmission Date: 20110219
  Serious: Yes (Death)
  Sender: FDA-Public Use
  Company Number: US-SHIRE-ALL1-2010-03912

PATIENT

DRUGS (1)
  1. FOSRENOL [Suspect]
     Indication: HYPERPHOSPHATAEMIA
     Dosage: UNK, OTHER (1.5 TABLETS WITH MEALS)
     Route: 048
     Dates: start: 20091101

REACTIONS (2)
  - DEATH [None]
  - UNEVALUABLE EVENT [None]
